FAERS Safety Report 22161526 (Version 1)
Quarter: 2023Q1

REPORT INFORMATION
  Report Type: Spontaneous
  Country: GB (occurrence: GB)
  Receive Date: 20230331
  Receipt Date: 20230331
  Transmission Date: 20230418
  Serious: Yes (Other)
  Sender: FDA-Public Use
  Company Number: GB-BAXTER-2022BAX000949

PATIENT
  Age: 62 Year
  Sex: Male

DRUGS (1)
  1. RITUXIMAB [Suspect]
     Active Substance: RITUXIMAB
     Indication: Waldenstrom^s macroglobulinaemia
     Dosage: 800/500 MG/ML  (16.8 ML, FREQUENCY NOT REPORTED)
     Route: 042
     Dates: start: 20211215, end: 20211215

REACTIONS (12)
  - Malaise [Recovered/Resolved]
  - Erythema [Recovered/Resolved]
  - Ill-defined disorder [Recovered/Resolved]
  - Staring [Recovered/Resolved]
  - Feeling hot [Recovered/Resolved]
  - Dizziness [Recovered/Resolved]
  - Pallor [Unknown]
  - Cold sweat [Unknown]
  - Symptom recurrence [Unknown]
  - Anxiety [Unknown]
  - Hypotension [Unknown]
  - Adverse drug reaction [Unknown]
